FAERS Safety Report 25881990 (Version 2)
Quarter: 2025Q4

REPORT INFORMATION
  Report Type: Spontaneous
  Country: BR (occurrence: BR)
  Receive Date: 20251005
  Receipt Date: 20251010
  Transmission Date: 20260118
  Serious: Yes (Other)
  Sender: BAXTER
  Company Number: BR-BAXTER-2025BAX021527

PATIENT
  Age: 64 Year
  Sex: Female
  Weight: 37 kg

DRUGS (7)
  1. IRON SUCROSE [Suspect]
     Active Substance: IRON SUCROSE
     Indication: Iron deficiency
     Dosage: 2 AMPOULES, THREE TIMES A WEEK (TOTAL OF 1000MG) DILUTED IN 250 ML OF SALINE SOLUTION 0.9%
     Route: 042
     Dates: start: 20250903
  2. IRON SUCROSE [Suspect]
     Active Substance: IRON SUCROSE
     Dosage: 2 AMPOULES
     Route: 042
     Dates: start: 20250909
  3. IRON SUCROSE [Suspect]
     Active Substance: IRON SUCROSE
     Dosage: 2 AMPOULES;  DILUTED IN 250 ML OF SALINE SOLUTION 0.9%
     Route: 042
     Dates: start: 20250916, end: 20250916
  4. SODIUM CHLORIDE [Suspect]
     Active Substance: SODIUM CHLORIDE
     Indication: Medication dilution
     Dosage: 2 AMPOULES DILUTED IN 250 ML OF SALINE SOLUTION 0.9% , INFUSION PERFORMED IN 2HOURS
     Route: 042
     Dates: start: 20250903, end: 20250903
  5. SODIUM CHLORIDE [Suspect]
     Active Substance: SODIUM CHLORIDE
     Dosage: 2 AMPOULES DILUTED IN 250 ML OF SALINE SOLUTION 0.9% , INFUSION PERFORMED IN 2HOURS
     Route: 042
     Dates: start: 20250916, end: 20250916
  6. DIPHENHYDRAMINE [Concomitant]
     Active Substance: DIPHENHYDRAMINE
     Indication: Prophylaxis
     Dosage: UNK
     Route: 042
     Dates: start: 20250916, end: 20250916
  7. HYDROCORTISONE [Concomitant]
     Active Substance: HYDROCORTISONE
     Indication: Prophylaxis
     Dosage: UNK
     Route: 042
     Dates: start: 20250916, end: 20250916

REACTIONS (6)
  - Cyanosis [Recovered/Resolved]
  - Paraesthesia [Recovered/Resolved]
  - Angioedema [Recovered/Resolved]
  - Oedema peripheral [Recovered/Resolved]
  - Erythema [Recovered/Resolved]
  - Hypotension [Recovered/Resolved]

NARRATIVE: CASE EVENT DATE: 20250903
